FAERS Safety Report 18096470 (Version 1)
Quarter: 2020Q3

REPORT INFORMATION
  Report Type: Spontaneous
  Country: BE (occurrence: BE)
  Receive Date: 20200730
  Receipt Date: 20200730
  Transmission Date: 20201103
  Serious: Yes (Disabling)
  Sender: FDA-Public Use
  Company Number: BE-BAUSCH-BL-2020-021726

PATIENT
  Sex: Female
  Weight: 80 kg

DRUGS (2)
  1. KYNTHEUM (BRODALUMAB) [Suspect]
     Active Substance: BRODALUMAB
     Route: 065
     Dates: start: 20200211
  2. KYNTHEUM (BRODALUMAB) [Suspect]
     Active Substance: BRODALUMAB
     Indication: GUTTATE PSORIASIS
     Route: 065
     Dates: start: 20200128, end: 20200204

REACTIONS (2)
  - Inflammation [Recovered/Resolved]
  - Inflammatory pain [Recovered/Resolved]

NARRATIVE: CASE EVENT DATE: 20200214
